FAERS Safety Report 13567025 (Version 1)
Quarter: 2017Q2

REPORT INFORMATION
  Report Type: Spontaneous
  Country: US (occurrence: US)
  Receive Date: 20170519
  Receipt Date: 20170519
  Transmission Date: 20170830
  Serious: Yes (Disabling)
  Sender: FDA-Public Use
  Company Number: None

PATIENT
  Age: 36 Year
  Sex: Female
  Weight: 58.5 kg

DRUGS (3)
  1. PROBIOTIC [Concomitant]
     Active Substance: PROBIOTICS NOS
  2. GADOVIST [Suspect]
     Active Substance: GADOBUTROL
     Indication: SCAN WITH CONTRAST
     Dosage: ?          QUANTITY:1 INJECTION(S);?
     Route: 042
     Dates: start: 20170327, end: 20170327
  3. DAILY MULTI-VITAMIN [Concomitant]
     Active Substance: VITAMINS

REACTIONS (15)
  - Myalgia [None]
  - Skin burning sensation [None]
  - Contrast media reaction [None]
  - Faeces discoloured [None]
  - Loss of personal independence in daily activities [None]
  - Paraesthesia [None]
  - Headache [None]
  - Insomnia [None]
  - Abnormal faeces [None]
  - Nightmare [None]
  - Muscle twitching [None]
  - Abdominal discomfort [None]
  - Muscular weakness [None]
  - Muscle spasms [None]
  - Eye pain [None]

NARRATIVE: CASE EVENT DATE: 20170329
